FAERS Safety Report 9570370 (Version 1)
Quarter: 2013Q3

REPORT INFORMATION
  Report Type: Spontaneous
  Country: US (occurrence: US)
  Receive Date: 20130930
  Receipt Date: 20130930
  Transmission Date: 20140515
  Serious: No
  Sender: FDA-Public Use
  Company Number: US-AMGEN-USASP2013064763

PATIENT
  Age: 59 Year
  Sex: Female

DRUGS (24)
  1. ENBREL [Suspect]
     Indication: RHEUMATOID ARTHRITIS
     Dosage: 50 MG, EVERY WEEK
     Route: 058
     Dates: start: 201303
  2. SINGULAIR [Concomitant]
     Dosage: 10 MG, UNK
  3. PLAQUENIL                          /00072602/ [Concomitant]
     Dosage: 200 MG, UNK
  4. ZOLOFT [Concomitant]
     Dosage: 50 MG, UNK
  5. LIPITOR [Concomitant]
     Dosage: 20 MG, UNK
  6. CARDIZEM LA [Concomitant]
     Dosage: 120 MG, UNK
  7. SYNTHROID [Concomitant]
     Dosage: 75 MUG, UNK
  8. BUDESONIDE [Concomitant]
     Dosage: 0.5MG/2
  9. VITAMIN E                          /00110501/ [Concomitant]
     Dosage: 1000 UNIT, UNK
  10. NIACIN [Concomitant]
     Dosage: 250 MG CR, UNK
  11. ALBUTEROL                          /00139501/ [Concomitant]
     Dosage: 0.5 %, UNK
  12. PRILOSEC                           /00661203/ [Concomitant]
     Dosage: 10 MG, UNK
  13. SPIRIVA HANDIHALER [Concomitant]
     Dosage: UNK
  14. FISH OIL [Concomitant]
     Dosage: UNK
  15. VITAMIN D                          /00107901/ [Concomitant]
     Dosage: 1000 UNIT, UNK
  16. EXCEDRIN                           /00214201/ [Concomitant]
     Dosage: UNK
  17. ZETIA [Concomitant]
     Dosage: 10 MG, UNK
  18. VITAMIN C                          /00008001/ [Concomitant]
     Dosage: 500 MG, UNK
  19. VITAMIN B12                        /00056201/ [Concomitant]
     Dosage: 1000 CR
  20. MULTIVITAMINS, PLAIN [Concomitant]
     Dosage: UNK
  21. CALCIUM + MAGNESIUM + ZINK [Concomitant]
     Dosage: UNK
  22. VASOTEC                            /00574902/ [Concomitant]
     Dosage: 20 MG, UNK
  23. VITAMIN B6 [Concomitant]
     Dosage: 250 MG, UNK
  24. BROVANA [Concomitant]
     Dosage: 15 MUG, UNK

REACTIONS (2)
  - Therapeutic response decreased [Unknown]
  - Rheumatoid arthritis [Unknown]
